FAERS Safety Report 9766942 (Version 1)
Quarter: 2013Q4

REPORT INFORMATION
  Report Type: Spontaneous
  Country: US (occurrence: US)
  Receive Date: 20131217
  Receipt Date: 20131217
  Transmission Date: 20140711
  Serious: No
  Sender: FDA-Public Use
  Company Number: US-GLAXOSMITHKLINE-A1034538A

PATIENT
  Age: 61 Year
  Sex: Female
  Weight: 72.8 kg

DRUGS (4)
  1. VOTRIENT [Suspect]
     Indication: PRODUCT USED FOR UNKNOWN INDICATION
     Dosage: 800MG PER DAY
     Dates: start: 20130712
  2. ZOFRAN [Concomitant]
  3. PHENERGAN [Concomitant]
  4. CARAFATE [Concomitant]

REACTIONS (3)
  - Nausea [Recovered/Resolved]
  - Diarrhoea [Recovered/Resolved]
  - Abdominal discomfort [Recovering/Resolving]
